FAERS Safety Report 6871324-3 (Version None)
Quarter: 2010Q3

REPORT INFORMATION
  Report Type: 
  Country: None (occurrence: None)
  Receive Date: 20100723
  Receipt Date: 20100716
  Transmission Date: 20110219
  Serious: Yes (Other)
  Sender: FDA-Public Use
  Company Number: MX-ELI_LILLY_AND_COMPANY-MX201007003783

PATIENT
  Sex: Male

DRUGS (3)
  1. HUMULIN N [Suspect]
     Dosage: UNK, UNKNOWN
     Route: 065
  2. DABEX [Concomitant]
     Dosage: UNK, UNKNOWN
     Route: 065
  3. BEZAFIBRATE [Concomitant]
     Dosage: UNK, UNKNOWN
     Route: 065

REACTIONS (1)
  - HEPATITIS C [None]
